FAERS Safety Report 14891431 (Version 1)
Quarter: 2018Q2

REPORT INFORMATION
  Report Type: Spontaneous
  Country: ZA (occurrence: ZA)
  Receive Date: 20180514
  Receipt Date: 20180514
  Transmission Date: 20180711
  Serious: Yes (Death, Other)
  Sender: FDA-Public Use
  Company Number: ZA-PFIZER INC-2018196532

PATIENT
  Age: 86 Year
  Sex: Female

DRUGS (4)
  1. ECOTRIN [Suspect]
     Active Substance: ASPIRIN
     Dosage: 81 MG, UNK
  2. CELEBREX [Suspect]
     Active Substance: CELECOXIB
     Dosage: 100 MG, UNK
  3. CO ZOMEVEK [Suspect]
     Active Substance: HYDROCHLOROTHIAZIDE\VALSARTAN
     Dosage: 160/12.5 MG
  4. ELTROXIN [Suspect]
     Active Substance: LEVOTHYROXINE
     Dosage: 50 UG, UNK

REACTIONS (1)
  - Neoplasm malignant [Fatal]
